FAERS Safety Report 6125366-6 (Version None)
Quarter: 2009Q1

REPORT INFORMATION
  Report Type: 
  Country: None (occurrence: None)
  Receive Date: 20090320
  Receipt Date: 20090309
  Transmission Date: 20090719
  Serious: Yes (Hospitalization)
  Sender: FDA-Public Use
  Company Number: US-WYE-H07554309

PATIENT
  Sex: Male
  Weight: 97.16 kg

DRUGS (2)
  1. RELISTOR [Suspect]
     Indication: CONSTIPATION
     Dosage: 12 MG EVERY 1 TOT
     Route: 058
     Dates: start: 20081212, end: 20081212
  2. ALPRAZOLAM [Suspect]
     Dosage: OVERDOSE AMOUNT UNKNOWN
     Dates: start: 20081212, end: 20081212

REACTIONS (4)
  - ABDOMINAL DISTENSION [None]
  - ABDOMINAL PAIN [None]
  - INTENTIONAL OVERDOSE [None]
  - SUICIDE ATTEMPT [None]
